FAERS Safety Report 5024493-4 (Version None)
Quarter: 2006Q2

REPORT INFORMATION
  Report Type: 
  Country: None (occurrence: None)
  Receive Date: 20060609
  Receipt Date: 20060609
  Transmission Date: 20061013
  Serious: Yes (Hospitalization, Other)
  Sender: FDA-Public Use
  Company Number: None

PATIENT
  Sex: Male
  Weight: 89 kg

DRUGS (3)
  1. CYCLOPHOSPHAMIDE [Suspect]
     Indication: ACUTE LYMPHOCYTIC LEUKAEMIA
     Dosage: 2140 MG
     Dates: start: 20060527
  2. CYTARABINE [Suspect]
     Dosage: 12840 MG
     Dates: start: 20060529
  3. METHOTREXATE [Suspect]
     Dosage: 15 MG
     Dates: start: 20060527

REACTIONS (4)
  - ANAEMIA [None]
  - CATHETER RELATED COMPLICATION [None]
  - DEHYDRATION [None]
  - DIZZINESS [None]
